FAERS Safety Report 9762539 (Version 1)
Quarter: 2013Q4

REPORT INFORMATION
  Report Type: Spontaneous
  Country: US (occurrence: US)
  Receive Date: 20131216
  Receipt Date: 20131216
  Transmission Date: 20140711
  Serious: No
  Sender: FDA-Public Use
  Company Number: US-BIOGENIDEC-2013BI105511

PATIENT
  Age: 56 Year
  Sex: Female

DRUGS (2)
  1. TECFIDERA [Suspect]
     Indication: MULTIPLE SCLEROSIS
     Route: 048
     Dates: start: 20130920, end: 20130926
  2. TECFIDERA [Suspect]
     Indication: MULTIPLE SCLEROSIS
     Route: 048
     Dates: start: 20130927, end: 20131011

REACTIONS (6)
  - Fatigue [Unknown]
  - Underdose [Unknown]
  - Headache [Recovered/Resolved]
  - Burning sensation [Recovered/Resolved]
  - Hepatic enzyme increased [Not Recovered/Not Resolved]
  - Gastrointestinal disorder [Recovered/Resolved]
